FAERS Safety Report 13576702 (Version 1)
Quarter: 2017Q2

REPORT INFORMATION
  Report Type: Spontaneous
  Country: US (occurrence: US)
  Receive Date: 20170524
  Receipt Date: 20170524
  Transmission Date: 20170830
  Serious: Yes (Other)
  Sender: FDA-Public Use
  Company Number: US-GLAXOSMITHKLINE-US2017076721

PATIENT
  Sex: Male

DRUGS (4)
  1. HYZAAR [Concomitant]
     Active Substance: HYDROCHLOROTHIAZIDE\LOSARTAN POTASSIUM
  2. HYDROCODONE [Concomitant]
     Active Substance: HYDROCODONE
  3. LOPRESSOR [Concomitant]
     Active Substance: METOPROLOL TARTRATE
  4. VENTOLIN HFA [Suspect]
     Active Substance: ALBUTEROL SULFATE
     Indication: DYSPNOEA
     Dosage: 2 PUFF(S), QID
     Route: 055
     Dates: start: 2013

REACTIONS (5)
  - Arthralgia [Not Recovered/Not Resolved]
  - Iliotibial band syndrome [Recovered/Resolved]
  - Pain in extremity [Not Recovered/Not Resolved]
  - Hip fracture [Unknown]
  - Osteonecrosis [Unknown]

NARRATIVE: CASE EVENT DATE: 2017
